FAERS Safety Report 4448669-X (Version None)
Quarter: 2004Q3

REPORT INFORMATION
  Report Type: 
  Country: None (occurrence: None)
  Receive Date: 20040909
  Receipt Date: 20040827
  Transmission Date: 20050211
  Serious: Yes (Hospitalization, Other)
  Sender: FDA-Public Use
  Company Number: 2004058288

PATIENT
  Age: 70 Year
  Sex: Male

DRUGS (5)
  1. NEURONTIN [Suspect]
     Indication: ILL-DEFINED DISORDER
     Dosage: UNK (3 IN 1 D), ORAL
     Route: 048
     Dates: end: 20040508
  2. APOREX (DEXTROPROPOXYPHENE HYDROCHLORIDE, PARACETAMOL) [Suspect]
     Indication: ILL-DEFINED DISORDER
     Dosage: UNK (3 IN 1 D), ORAL
     Route: 048
     Dates: start: 20040504, end: 20040508
  3. CLAVULIN (AMOXICILLIN TRIHYDRATE, CLAVULANATE POTASSIUM) [Suspect]
     Indication: ILL-DEFINED DISORDER
     Dosage: 2 GRAM (2 IN 1 D), ORAL
     Route: 048
     Dates: start: 20040508
  4. VALSARTAN (VALSARTAN) [Suspect]
     Indication: ILL-DEFINED DISORDER
     Dosage: UNK, ORAL
     Route: 048
     Dates: start: 20020101, end: 20040513
  5. BISOPROLOL FUMARATE [Concomitant]

REACTIONS (3)
  - CHOLELITHIASIS [None]
  - CHOLESTASIS [None]
  - CYTOLYTIC HEPATITIS [None]
